FAERS Safety Report 10289674 (Version 2)
Quarter: 2014Q3

REPORT INFORMATION
  Report Type: Spontaneous
  Country: US (occurrence: None)
  Receive Date: 20140707
  Receipt Date: 20140728
  Transmission Date: 20150326
  Serious: Yes (Hospitalization)
  Sender: FDA-Public Use
  Company Number: UNT-2014-003062

PATIENT
  Age: 72 Year
  Sex: Female
  Weight: 53.1 kg

DRUGS (3)
  1. TYVASO [Suspect]
     Active Substance: TREPROSTINIL
     Indication: COR PULMONALE CHRONIC
     Route: 055
     Dates: start: 20140114
  2. LETAIRIS [Concomitant]
     Active Substance: AMBRISENTAN
  3. RIOCIGUAT (RIOCIGUAT) [Suspect]
     Active Substance: RIOCIGUAT
     Indication: PRODUCT USED FOR UNKNOWN INDICATION

REACTIONS (2)
  - Oedema peripheral [None]
  - Oedema [None]

NARRATIVE: CASE EVENT DATE: 20140618
